FAERS Safety Report 8381406-5 (Version None)
Quarter: 2012Q2

REPORT INFORMATION
  Report Type: 
  Country: None (occurrence: None)
  Receive Date: 20120523
  Receipt Date: 20120416
  Transmission Date: 20120825
  Serious: Yes (Death, Life-Threatening, Hospitalization, Disabling)
  Sender: FDA-Public Use
  Company Number: FR-ROCHE-753974

PATIENT
  Sex: Male
  Weight: 68 kg

DRUGS (34)
  1. ESOMEPRAZOLE MAGNESIUM [Suspect]
     Route: 065
     Dates: start: 20110116, end: 20110201
  2. ADANCOR [Concomitant]
  3. AMLODIPINE BESYLATE [Concomitant]
     Dates: start: 20110120, end: 20110208
  4. INSULATARD NPH HUMAN [Concomitant]
  5. ECONAZOLE NITRATE [Concomitant]
     Dates: start: 20110131, end: 20110208
  6. POTASSIUM CHLORIDE [Concomitant]
     Dosage: DOSE: 440 MG/15ML/4DAY
     Dates: start: 20110209, end: 20110213
  7. PREDNISONE TAB [Suspect]
     Indication: TRANSPLANT REJECTION
     Route: 048
  8. CYCLOSPORINE [Suspect]
  9. EVEROLIMUS [Suspect]
     Indication: PRODUCT USED FOR UNKNOWN INDICATION
     Route: 065
     Dates: start: 20110202, end: 20110209
  10. ADANCOR [Concomitant]
  11. IMODIUM [Concomitant]
     Dates: start: 20110209, end: 20110213
  12. ALFUZOSIN HCL [Concomitant]
  13. CELLCEPT [Suspect]
     Dosage: PERMANENTLY DISCONTINUED. DATE OF LAST DOSE PRIOR TO SAE: 08 MARCH 2011.
     Route: 048
     Dates: start: 20110301, end: 20110308
  14. CALCIDIA [Concomitant]
  15. ASPIRIN [Concomitant]
  16. CELLCEPT [Suspect]
     Indication: TRANSPLANT REJECTION
     Dosage: FREQUENCY: EVERYDAY. TEMPORARILY INTERRUPTED
     Route: 048
     Dates: start: 20110115, end: 20110209
  17. PREDNISONE TAB [Suspect]
     Dosage: DATE OF LAST DOSE PRIOR TO SAE: 16 MARCH 2011.
     Route: 048
  18. CYCLOPHOSPHAMIDE [Suspect]
     Indication: TRANSPLANT REJECTION
     Route: 048
     Dates: start: 20110117, end: 20110201
  19. METHYLPREDNISOLONE AND METHYLPREDNISOLONE [Suspect]
     Indication: TRANSPLANT REJECTION
     Route: 042
     Dates: start: 20110115, end: 20110115
  20. BASILIXIMAB [Suspect]
     Indication: TRANSPLANT REJECTION
     Route: 065
     Dates: start: 20110115, end: 20110115
  21. MIRTAZAPINE [Concomitant]
     Dates: start: 20110130, end: 20110204
  22. VALCYTE [Suspect]
     Dosage: TWICE A WEEK
     Route: 065
     Dates: start: 20110129, end: 20110201
  23. CALCIDIA [Concomitant]
     Dates: start: 20110305, end: 20110313
  24. LASIX [Concomitant]
     Dates: start: 20110120, end: 20110207
  25. EPREX [Concomitant]
     Dosage: TDD: 6000U
  26. CYCLOSPORINE [Suspect]
     Route: 047
  27. NITRODERM [Concomitant]
  28. POTASSIUM CHLORIDE [Concomitant]
     Dates: start: 20110308, end: 20110311
  29. AMOXICILLIN [Concomitant]
     Dates: start: 20110214, end: 20110306
  30. SULFAMETHOXAZOLE AND TRIMETHOPRIM [Suspect]
     Route: 065
     Dates: start: 20110124, end: 20110201
  31. RANITIDINE HCL [Suspect]
     Route: 065
     Dates: start: 20110202, end: 20110209
  32. LASIX [Concomitant]
     Dates: start: 20110222, end: 20110306
  33. SODIUM BICARBONATE [Concomitant]
  34. ALUMINUM HYDROXIDE AND MAGNESIUM TRISILICATE [Concomitant]
     Dates: start: 20110209, end: 20110213

REACTIONS (10)
  - BRONCHIAL OBSTRUCTION [None]
  - COMPLICATIONS OF TRANSPLANTED KIDNEY [None]
  - UNEVALUABLE EVENT [None]
  - RENAL IMPAIRMENT [None]
  - THROMBOCYTOPENIA [None]
  - MALNUTRITION [None]
  - CULTURE WOUND POSITIVE [None]
  - ANASTOMOTIC HAEMORRHAGE [None]
  - ESCHERICHIA SEPSIS [None]
  - WOUND DEHISCENCE [None]
